FAERS Safety Report 11717213 (Version 4)
Quarter: 2016Q2

REPORT INFORMATION
  Report Type: Report from Study
  Country: US (occurrence: US)
  Receive Date: 20151109
  Receipt Date: 20160610
  Transmission Date: 20160815
  Serious: Yes (Disabling, Other)
  Sender: FDA-Public Use
  Company Number: US-REGENERON PHARMACEUTICALS, INC.-2015-13527

PATIENT

DRUGS (1)
  1. EYLEA [Suspect]
     Active Substance: AFLIBERCEPT
     Indication: DIABETIC RETINOPATHY
     Dosage: 2 MG MILLIGRAM(S), UNK
     Route: 031
     Dates: start: 20150210, end: 20150210

REACTIONS (3)
  - Vitreous haemorrhage [Recovered/Resolved]
  - Blindness transient [Recovered/Resolved]
  - Vitrectomy [Recovered/Resolved]

NARRATIVE: CASE EVENT DATE: 20150210
